FAERS Safety Report 22946736 (Version 5)
Quarter: 2023Q4

REPORT INFORMATION
  Report Type: Report from Study
  Country: CO (occurrence: CO)
  Receive Date: 20230915
  Receipt Date: 20231201
  Transmission Date: 20240110
  Serious: Yes (Hospitalization)
  Sender: FDA-Public Use
  Company Number: CO-002147023-NVSC2023CO195747

PATIENT
  Age: 34 Year
  Sex: Female
  Weight: 71 kg

DRUGS (20)
  1. CRIZANLIZUMAB [Suspect]
     Active Substance: CRIZANLIZUMAB
     Indication: Sickle cell disease
     Dosage: 502.5 MG, QMO
     Route: 042
     Dates: start: 20221227
  2. ADAKVEO [Suspect]
     Active Substance: CRIZANLIZUMAB-TMCA
     Indication: Sickle cell disease
     Dosage: 7.5 MG/KG
     Route: 042
     Dates: start: 20210209
  3. FOLIC ACID [Concomitant]
     Active Substance: FOLIC ACID
     Indication: Sickle cell disease
     Dosage: UNK
     Route: 065
     Dates: start: 1998
  4. HYDROXYUREA [Concomitant]
     Active Substance: HYDROXYUREA
     Indication: Sickle cell disease
     Dosage: UNK
     Route: 065
     Dates: start: 1998
  5. ASPIRIN [Concomitant]
     Active Substance: ASPIRIN
     Indication: Sickle cell disease
     Dosage: UNK
     Route: 065
     Dates: start: 20210810
  6. ENOXAPARIN [Concomitant]
     Active Substance: ENOXAPARIN
     Indication: Prophylaxis
     Dosage: UNK
     Route: 065
     Dates: start: 20210810
  7. PANTOPRAZOLE [Concomitant]
     Active Substance: PANTOPRAZOLE
     Indication: General physical condition
     Dosage: UNK
     Route: 065
     Dates: start: 20210810
  8. VITAMIN B [Concomitant]
     Active Substance: VITAMIN B
     Indication: General physical condition
     Dosage: UNK
     Route: 065
     Dates: start: 20210810
  9. ACETAMINOPHEN [Concomitant]
     Active Substance: ACETAMINOPHEN
     Indication: Fibromyalgia
     Dosage: UNK
     Route: 065
     Dates: start: 20220527
  10. ACETAMINOPHEN [Concomitant]
     Active Substance: ACETAMINOPHEN
     Dosage: UNK
     Route: 065
     Dates: start: 20220910
  11. CAFFEINE [Concomitant]
     Active Substance: CAFFEINE
     Indication: Fibromyalgia
     Dosage: UNK
     Route: 065
     Dates: start: 20220527
  12. CAFFEINE [Concomitant]
     Active Substance: CAFFEINE
     Dosage: UNK
     Route: 065
     Dates: start: 20220910
  13. DULOXETINE [Concomitant]
     Active Substance: DULOXETINE
     Indication: Fibromyalgia
     Dosage: UNK
     Route: 065
     Dates: start: 20220527
  14. DROSPIRENONE [Concomitant]
     Active Substance: DROSPIRENONE
     Indication: Dysmenorrhoea
     Dosage: UNK
     Route: 065
     Dates: start: 20220529
  15. DROSPIRENONE [Concomitant]
     Active Substance: DROSPIRENONE
     Indication: Contraception
  16. LACTULOSE [Concomitant]
     Active Substance: LACTULOSE
     Indication: Constipation
     Dosage: UNK
     Route: 065
     Dates: start: 20221201
  17. GABAPENTIN [Concomitant]
     Active Substance: GABAPENTIN
     Indication: Fibromyalgia
     Dosage: UNK
     Route: 065
     Dates: start: 20230126
  18. TAPENTADOL [Concomitant]
     Active Substance: TAPENTADOL
     Indication: Fibromyalgia
     Dosage: UNK
     Route: 065
     Dates: start: 20230126
  19. BISACODYL [Concomitant]
     Active Substance: BISACODYL
     Indication: Constipation
     Dosage: UNK
     Route: 065
     Dates: start: 20230530
  20. ESZOPICLONE [Concomitant]
     Active Substance: ESZOPICLONE
     Indication: Anxiety disorder
     Dosage: UNK
     Route: 065
     Dates: start: 20230621

REACTIONS (1)
  - Skin lesion [Recovering/Resolving]

NARRATIVE: CASE EVENT DATE: 20230816
